FAERS Safety Report 9699731 (Version 2)
Quarter: 2014Q1

REPORT INFORMATION
  Report Type: Spontaneous
  Country: US (occurrence: US)
  Receive Date: 20131120
  Receipt Date: 20140110
  Transmission Date: 20141002
  Serious: Yes (Hospitalization, Congenital Anomaly, Other)
  Sender: FDA-Public Use
  Company Number: US-RB-060798-13

PATIENT
  Age: 0 Year
  Sex: Male

DRUGS (6)
  1. SUBUTEX [Suspect]
     Indication: DRUG DEPENDENCE
     Route: 064
     Dates: start: 2013, end: 2013
  2. SUBUTEX [Suspect]
     Route: 064
     Dates: start: 2013, end: 20131019
  3. TOBACCO [Suspect]
     Indication: PRODUCT USED FOR UNKNOWN INDICATION
     Dosage: DOSING DETAILS UNKNOWN
     Route: 064
  4. PROMETHAZINE HYDROCHLORIDE [Concomitant]
     Indication: NAUSEA
     Dosage: ONE TABLET EVERY 6 HOURS AS NEEDED FOR MATERNAL NAUSEA
     Route: 064
     Dates: start: 2013, end: 20131019
  5. FERROUS SULFATE [Concomitant]
     Indication: PRODUCT USED FOR UNKNOWN INDICATION
     Dosage: ONE TABLET BY MOUTH DAILY
     Route: 064
     Dates: start: 2013, end: 20131019
  6. FLINTSTONES COMPLETE [Concomitant]
     Indication: PRODUCT USED FOR UNKNOWN INDICATION
     Dosage: 2 DAILY, CHEW
     Route: 064
     Dates: start: 2013, end: 20131019

REACTIONS (15)
  - Foetal exposure during pregnancy [Recovered/Resolved]
  - Pierre Robin syndrome [Unknown]
  - Cleft palate [Unknown]
  - Feeding disorder neonatal [Unknown]
  - Nasal flaring [Unknown]
  - Use of accessory respiratory muscles [Unknown]
  - Crying [Unknown]
  - Excoriation [Unknown]
  - Pulmonary congestion [Unknown]
  - Agitation neonatal [Unknown]
  - Dermatitis diaper [Unknown]
  - Blood bilirubin increased [Unknown]
  - Carbon dioxide decreased [Unknown]
  - Conjunctival haemorrhage [Unknown]
  - Contusion [Unknown]
